FAERS Safety Report 9702453 (Version 2)
Quarter: 2013Q4

REPORT INFORMATION
  Report Type: Spontaneous
  Country: GB (occurrence: GB)
  Receive Date: 20131121
  Receipt Date: 20131202
  Transmission Date: 20140711
  Serious: Yes (Other)
  Sender: FDA-Public Use
  Company Number: GB-PFIZER INC-2013327766

PATIENT
  Age: 72 Year
  Sex: Male

DRUGS (1)
  1. VIAGRA [Suspect]
     Indication: ERECTILE DYSFUNCTION
     Dosage: 100 MG TABLET SPLIT IN HALF

REACTIONS (4)
  - Optic ischaemic neuropathy [Unknown]
  - Blindness unilateral [Unknown]
  - Vitreous floaters [Unknown]
  - Vision blurred [Not Recovered/Not Resolved]
